FAERS Safety Report 24559350 (Version 1)
Quarter: 2024Q4

REPORT INFORMATION
  Report Type: Spontaneous
  Country: US (occurrence: US)
  Receive Date: 20241029
  Receipt Date: 20241029
  Transmission Date: 20250115
  Serious: Yes (Hospitalization)
  Sender: RECORDATI
  Company Number: US-ORPHANEU-2024008307

PATIENT

DRUGS (1)
  1. OSILODROSTAT [Suspect]
     Active Substance: OSILODROSTAT
     Indication: Product used for unknown indication
     Dosage: 4 MILLIGRAM, BID

REACTIONS (2)
  - Hyperaldosteronism [Unknown]
  - Blood potassium decreased [Unknown]
